FAERS Safety Report 25121897 (Version 2)
Quarter: 2025Q1

REPORT INFORMATION
  Report Type: Report from Study
  Country: US (occurrence: US)
  Receive Date: 20250326
  Receipt Date: 20250328
  Transmission Date: 20250409
  Serious: Yes (Death, Hospitalization, Other)
  Sender: SUNOVION
  Company Number: US-SMPA-2025SPA003519

PATIENT

DRUGS (4)
  1. ORGOVYX [Suspect]
     Active Substance: RELUGOLIX
     Indication: Chronic myeloid leukaemia
     Route: 048
     Dates: start: 20240224, end: 20240224
  2. ORGOVYX [Suspect]
     Active Substance: RELUGOLIX
     Dosage: 120 MG, QD
     Route: 048
     Dates: start: 20240225
  3. DOPTELET [Concomitant]
     Active Substance: AVATROMBOPAG MALEATE
     Indication: Chronic myeloid leukaemia
     Dosage: 20 MG, QOD
     Route: 065
     Dates: start: 20220519
  4. TAGRISSO [Concomitant]
     Active Substance: OSIMERTINIB
     Indication: Product used for unknown indication
     Route: 065

REACTIONS (3)
  - Death [Fatal]
  - Pulmonary embolism [Unknown]
  - Off label use [Unknown]

NARRATIVE: CASE EVENT DATE: 20250321
